FAERS Safety Report 6648022-4 (Version None)
Quarter: 2010Q1

REPORT INFORMATION
  Report Type: 
  Country: None (occurrence: None)
  Receive Date: 20100319
  Receipt Date: 20100309
  Transmission Date: 20100710
  Serious: Yes (Hospitalization, Other)
  Sender: FDA-Public Use
  Company Number: 2009SP030810

PATIENT
  Age: 40 Year
  Sex: Female

DRUGS (16)
  1. NUVARING [Suspect]
     Indication: CONTRACEPTION
     Dates: start: 20040901, end: 20080324
  2. WELLBUTRIN [Concomitant]
  3. LEXAPRO [Concomitant]
  4. CANASA [Concomitant]
  5. CELEXA [Concomitant]
  6. NYSTATIN [Concomitant]
  7. MESALAMINE [Concomitant]
  8. AKNE-MYCIN [Concomitant]
  9. DOXYCYCLINE [Concomitant]
  10. HYDROCODONE BITARTRATE AND ACETAMINOPHEN [Concomitant]
  11. PREDNISONE [Concomitant]
  12. DIFFERIN [Concomitant]
  13. ALPRAZOLAM [Concomitant]
  14. NULEV [Concomitant]
  15. OXYCODONE HCL AND ACETAMINOPHEN [Concomitant]
  16. ALIGN [Concomitant]

REACTIONS (25)
  - ABDOMINAL PAIN UPPER [None]
  - ALANINE AMINOTRANSFERASE INCREASED [None]
  - AORTIC ARTERIOSCLEROSIS [None]
  - ASPARTATE AMINOTRANSFERASE INCREASED [None]
  - BILIARY DYSKINESIA [None]
  - COLITIS ULCERATIVE [None]
  - DYSPNOEA [None]
  - HAEMATOCHEZIA [None]
  - HAEMORRHAGE [None]
  - HEADACHE [None]
  - HYPERCOAGULATION [None]
  - INTRACRANIAL VENOUS SINUS THROMBOSIS [None]
  - LOBAR PNEUMONIA [None]
  - LUMBAR PUNCTURE ABNORMAL [None]
  - NAUSEA [None]
  - RED BLOOD CELL SEDIMENTATION RATE INCREASED [None]
  - SINUSITIS [None]
  - SUBDURAL HAEMORRHAGE [None]
  - TRANSVERSE SINUS THROMBOSIS [None]
  - VAGINAL DISCHARGE [None]
  - VAGINITIS BACTERIAL [None]
  - VENOUS OCCLUSION [None]
  - VISION BLURRED [None]
  - VOMITING [None]
  - WEIGHT INCREASED [None]
